FAERS Safety Report 15555879 (Version 1)
Quarter: 2018Q4

REPORT INFORMATION
  Report Type: Report from Study
  Country: CA (occurrence: CA)
  Receive Date: 20181026
  Receipt Date: 20181026
  Transmission Date: 20190205
  Serious: Yes (Death)
  Sender: FDA-Public Use
  Company Number: CA-TAIHO ONCOLOGY  INC-EU-2018-01805

PATIENT
  Age: 71 Year
  Sex: Male
  Weight: 82 kg

DRUGS (1)
  1. LONSURF [Suspect]
     Active Substance: TIPIRACIL HYDROCHLORIDE\TRIFLURIDINE
     Indication: COLORECTAL CANCER METASTATIC
     Dosage: CYCLE 1 STARTED 05/OCT/2018
     Route: 048
     Dates: start: 20181005, end: 201810

REACTIONS (1)
  - Death [Fatal]

NARRATIVE: CASE EVENT DATE: 201810
